FAERS Safety Report 8549152-2 (Version None)
Quarter: 2012Q3

REPORT INFORMATION
  Report Type: 
  Country: None (occurrence: None)
  Receive Date: 20120730
  Receipt Date: 20120725
  Transmission Date: 20120928
  Serious: Yes (Other)
  Sender: FDA-Public Use
  Company Number: US-PFIZER INC-2011102419

PATIENT
  Sex: Male
  Weight: 113 kg

DRUGS (8)
  1. ABILIFY [Suspect]
     Indication: BIPOLAR DISORDER
     Dosage: 10 MG, DAILY
  2. ABILIFY [Suspect]
     Dosage: 15 MG, DAILY
  3. CHANTIX [Suspect]
     Dosage: 1 MG, 2X/DAY
     Dates: start: 20120701
  4. LEXAPRO [Suspect]
     Indication: DEPRESSION
     Dosage: 10 MG, UNK
  5. CHANTIX [Suspect]
     Indication: SMOKING CESSATION THERAPY
     Dosage: 0.5 MG, DAILY
  6. XANAX [Concomitant]
     Indication: ANXIETY
     Dosage: UNK
  7. CHANTIX [Suspect]
     Dosage: UNK
     Dates: start: 20110101
  8. GEODON [Suspect]
     Indication: BIPOLAR DISORDER
     Dosage: 40 MG, 2X/DAY

REACTIONS (7)
  - URINARY RETENTION [None]
  - THIRST [None]
  - DRUG INEFFECTIVE [None]
  - POLLAKIURIA [None]
  - SUICIDAL IDEATION [None]
  - INSOMNIA [None]
  - LOSS OF LIBIDO [None]
